FAERS Safety Report 9386318 (Version 4)
Quarter: 2013Q3

REPORT INFORMATION
  Report Type: Report from Study
  Country: CH (occurrence: CH)
  Receive Date: 20130708
  Receipt Date: 20130903
  Transmission Date: 20140515
  Serious: Yes (Hospitalization)
  Sender: FDA-Public Use
  Company Number: CH-ROCHE-1243826

PATIENT
  Age: 71 Year
  Sex: Female

DRUGS (3)
  1. ERLOTINIB [Suspect]
     Indication: BRONCHIAL CARCINOMA
     Dosage: DATE OF LAST DOSE PRIOR TO SAE24/JUN/2013
     Route: 048
     Dates: start: 20120228
  2. BEVACIZUMAB [Suspect]
     Indication: LUNG ADENOCARCINOMA METASTATIC
     Dosage: DATE OF LAST DOSE PRIOR TO SAE 13/JUN/2013
     Route: 042
     Dates: start: 20120228
  3. CALCIMAGON [Concomitant]
     Route: 048

REACTIONS (2)
  - Dyspnoea [Recovered/Resolved]
  - General physical health deterioration [Recovered/Resolved]
